FAERS Safety Report 7185247-6 (Version None)
Quarter: 2010Q4

REPORT INFORMATION
  Report Type: 
  Country: None (occurrence: None)
  Receive Date: 20101222
  Receipt Date: 20100601
  Transmission Date: 20110411
  Serious: No
  Sender: FDA-Public Use
  Company Number: US-AMGEN-KDL415644

PATIENT

DRUGS (12)
  1. ENBREL [Suspect]
     Indication: PRODUCT USED FOR UNKNOWN INDICATION
     Dosage: 50 MG, QWK
     Route: 058
  2. IBANDRONATE SODIUM [Concomitant]
     Dosage: 2.5 MG, UNK
  3. SIMVASTATIN [Concomitant]
     Dosage: 40 MG, UNK
  4. DIFLUNISAL [Concomitant]
     Dosage: 500 MG, UNK
  5. LISINOPRIL AND HYDROCHLOROTHIAZIDE [Concomitant]
     Dosage: 25 MG, UNK
  6. FOLIC ACID [Concomitant]
     Dosage: 1 MG, UNK
  7. POTASSIUM CHLORIDE [Concomitant]
     Dosage: UNK UNK, UNK
  8. ESCITALOPRAM [Concomitant]
     Dosage: 10 MG, UNK
  9. MULTI-VITAMINS [Concomitant]
     Dosage: UNK UNK, UNK
  10. TOCOPHEROL CONCENTRATE CAP [Concomitant]
  11. ERGOCALCIFEROL [Concomitant]
     Dosage: 1000 IU, UNK
  12. CALCIUM WITH VITAMIN D [Concomitant]

REACTIONS (1)
  - URINARY TRACT INFECTION [None]
